FAERS Safety Report 21356561 (Version 2)
Quarter: 2022Q3

REPORT INFORMATION
  Report Type: Other
  Country: US (occurrence: None)
  Receive Date: 20220920
  Receipt Date: 20220923
  Transmission Date: 20221026
  Serious: Yes (Hospitalization)
  Sender: FDA-Public Use
  Company Number: US-ROCHE-3000918

PATIENT
  Sex: Female

DRUGS (2)
  1. ESBRIET [Suspect]
     Active Substance: PIRFENIDONE
     Indication: Type 2 diabetes mellitus
     Route: 048
  2. ESBRIET [Suspect]
     Active Substance: PIRFENIDONE
     Indication: Idiopathic pulmonary fibrosis
     Dosage: TAKE 1 TABLET 3 TIMES A DAY FOR 7 DAYS THEN TAKE 2 TABLET(S) 3 TIMES A DAY FOR 14 DAYS THEN TAKE 3 T
     Route: 048

REACTIONS (3)
  - Illness [Unknown]
  - Pulmonary fibrosis [Unknown]
  - Product dose omission issue [Unknown]
